FAERS Safety Report 25167509 (Version 1)
Quarter: 2025Q2

REPORT INFORMATION
  Report Type: Spontaneous
  Country: US (occurrence: None)
  Receive Date: 20250406
  Receipt Date: 20250406
  Transmission Date: 20250716
  Serious: Yes (Other)
  Sender: FDA-CTU
  Company Number: None

PATIENT
  Age: 63 Year
  Sex: Female
  Weight: 72.9 kg

DRUGS (5)
  1. TRAMADOL HYDROCHLORIDE [Suspect]
     Active Substance: TRAMADOL HYDROCHLORIDE
     Indication: Back pain
     Dosage: FREQUENCY : EVERY 6 HOURS;?
     Route: 048
     Dates: start: 20250403, end: 20250406
  2. TIROSINT [Concomitant]
     Active Substance: LEVOTHYROXINE SODIUM
  3. AIMOVIG [Concomitant]
     Active Substance: ERENUMAB-AOOE
  4. REPATHA [Concomitant]
     Active Substance: EVOLOCUMAB
  5. COSENTYX [Concomitant]
     Active Substance: SECUKINUMAB

REACTIONS (1)
  - Pruritus [None]

NARRATIVE: CASE EVENT DATE: 20250406
